FAERS Safety Report 7410953-5 (Version None)
Quarter: 2011Q2

REPORT INFORMATION
  Report Type: 
  Country: None (occurrence: None)
  Receive Date: 20110405
  Receipt Date: 20110321
  Transmission Date: 20111010
  Serious: Yes (Hospitalization)
  Sender: FDA-Public Use
  Company Number: 2011MA002673

PATIENT
  Age: 66 Year
  Sex: Male

DRUGS (1)
  1. PRAMIPEXOLE DIHYDROCHLORIDE [Suspect]
     Indication: PARKINSON'S DISEASE
     Dosage: 3 MG;OD;PO
     Route: 048

REACTIONS (8)
  - EXCESSIVE EXERCISE [None]
  - CEREBRAL ATROPHY [None]
  - IRRITABILITY [None]
  - HYPERTENSIVE CRISIS [None]
  - DEPRESSION [None]
  - OBSESSIVE-COMPULSIVE DISORDER [None]
  - NEUROPSYCHOLOGICAL TEST ABNORMAL [None]
  - WITHDRAWAL SYNDROME [None]
